FAERS Safety Report 18738469 (Version 3)
Quarter: 2021Q1

REPORT INFORMATION
  Report Type: Report from Study
  Country: CA (occurrence: CA)
  Receive Date: 20210114
  Receipt Date: 20210204
  Transmission Date: 20210419
  Serious: Yes (Other)
  Sender: FDA-Public Use
  Company Number: CA-JNJFOC-20210109629

PATIENT
  Age: 47 Year
  Sex: Male
  Weight: 108 kg

DRUGS (2)
  1. STELARA [Suspect]
     Active Substance: USTEKINUMAB
     Indication: COLITIS ULCERATIVE
     Route: 058
     Dates: start: 20200415
  2. STELARA [Suspect]
     Active Substance: USTEKINUMAB

REACTIONS (4)
  - Cellulitis [Recovering/Resolving]
  - Erythema [Recovering/Resolving]
  - Pruritus [Unknown]
  - Injection related reaction [Recovering/Resolving]

NARRATIVE: CASE EVENT DATE: 20201204
